FAERS Safety Report 7550735-7 (Version None)
Quarter: 2011Q2

REPORT INFORMATION
  Report Type: 
  Country: None (occurrence: None)
  Receive Date: 20110609
  Receipt Date: 20110524
  Transmission Date: 20111010
  Serious: Yes (Life-Threatening, Hospitalization, Other)
  Sender: FDA-Public Use
  Company Number: 2011MA006480

PATIENT
  Age: 40 Year
  Sex: Male

DRUGS (2)
  1. OXYCODONE HCL AND ACETAMINOPHEN [Concomitant]
  2. OXYCODONE HCL [Suspect]
     Indication: ANALGESIC THERAPY
     Dosage: 20 MG; BID

REACTIONS (3)
  - REFUSAL OF TREATMENT BY PATIENT [None]
  - DRUG DEPENDENCE [None]
  - HYPERAESTHESIA [None]
